FAERS Safety Report 25814224 (Version 1)
Quarter: 2025Q3

REPORT INFORMATION
  Report Type: Spontaneous
  Country: CH (occurrence: CH)
  Receive Date: 20250917
  Receipt Date: 20250917
  Transmission Date: 20251020
  Serious: Yes (Death)
  Sender: BAYER HEALTHCARE PHARMACEUTICALS INC.
  Company Number: CH-BAYER-2025A121297

PATIENT
  Age: 68 Year
  Sex: Female

DRUGS (5)
  1. ADEMPAS [Suspect]
     Active Substance: RIOCIGUAT
     Route: 048
     Dates: start: 20240731
  2. ADEMPAS [Suspect]
     Active Substance: RIOCIGUAT
  3. GLIVEC [Concomitant]
     Active Substance: IMATINIB MESYLATE
  4. TRACLEER [Concomitant]
     Active Substance: BOSENTAN
  5. ILOPROST TROMETHAMINE [Concomitant]
     Active Substance: ILOPROST TROMETHAMINE

REACTIONS (1)
  - Death [Fatal]

NARRATIVE: CASE EVENT DATE: 20250729
